FAERS Safety Report 11086503 (Version 1)
Quarter: 2015Q2

REPORT INFORMATION
  Report Type: Spontaneous
  Country: US (occurrence: None)
  Receive Date: 20150501
  Receipt Date: 20150501
  Transmission Date: 20150821
  Serious: Yes (Hospitalization)
  Sender: FDA-Public Use
  Company Number: None

PATIENT
  Age: 26 Year
  Sex: Male

DRUGS (2)
  1. CLOZAPINE. [Suspect]
     Active Substance: CLOZAPINE
     Indication: SCHIZOAFFECTIVE DISORDER
     Dosage: 100MG, TITRATION SCHEDULE, WEEKLY, PO
     Route: 048
     Dates: start: 20150407, end: 20150414
  2. CLOZAPINE. [Suspect]
     Active Substance: CLOZAPINE
     Indication: SCHIZOAFFECTIVE DISORDER
     Dosage: 25MG TITRATION SCHEDULE, WEEKLY, PO
     Route: 048
     Dates: start: 20150401, end: 20150408

REACTIONS (1)
  - Myocarditis [None]

NARRATIVE: CASE EVENT DATE: 20150420
